FAERS Safety Report 21205722 (Version 1)
Quarter: 2022Q3

REPORT INFORMATION
  Report Type: Spontaneous
  Country: US (occurrence: US)
  Receive Date: 20220812
  Receipt Date: 20220812
  Transmission Date: 20221026
  Serious: No
  Sender: FDA-Public Use
  Company Number: US-BRISTOL-MYERS SQUIBB COMPANY-2022-087674

PATIENT
  Age: 51 Year
  Sex: Male
  Weight: 90.7 kg

DRUGS (4)
  1. POMALYST [Suspect]
     Active Substance: POMALIDOMIDE
     Indication: Plasma cell myeloma
     Dosage: DOSE : 4MG;     FREQ : 21 DAYS ON 7 DAYS OFF
     Route: 048
     Dates: start: 20210513
  2. ACYCLOVIR [Concomitant]
     Active Substance: ACYCLOVIR
     Indication: Product used for unknown indication
     Route: 065
     Dates: start: 20181228
  3. ZOMETA [Concomitant]
     Active Substance: ZOLEDRONIC ACID
     Indication: Product used for unknown indication
     Route: 065
     Dates: start: 20181228
  4. PANTOPRAZOLE PS [Concomitant]
     Indication: Product used for unknown indication
     Route: 065
     Dates: start: 20181228

REACTIONS (2)
  - Hypoaesthesia [Recovering/Resolving]
  - White blood cell count decreased [Unknown]

NARRATIVE: CASE EVENT DATE: 20210608
